FAERS Safety Report 8924918 (Version 1)
Quarter: 2012Q4

REPORT INFORMATION
  Report Type: 
  Country: JP (occurrence: JP)
  Receive Date: 20121126
  Receipt Date: 20121126
  Transmission Date: 20130627
  Serious: Yes (Life-Threatening, Hospitalization)
  Sender: FDA-Public Use
  Company Number: JP-ROCHE-315590

PATIENT
  Age: 75 None
  Sex: Female
  Weight: 62 kg

DRUGS (8)
  1. ROCEPHIN [Suspect]
     Indication: BRONCHITIS
     Dosage: ADMINISTERED DAILY.
     Route: 041
     Dates: start: 20020528, end: 20020608
  2. VOLTAREN [Suspect]
     Indication: BRONCHITIS
     Route: 048
     Dates: start: 20020528, end: 20020608
  3. CEFIXIME [Concomitant]
     Indication: BRONCHITIS
     Route: 048
     Dates: start: 20020528, end: 20020608
  4. LYSOZYME CHLORIDE [Concomitant]
     Indication: BRONCHITIS
     Route: 048
     Dates: start: 20020528, end: 20020609
  5. CETRAXATE HYDROCHLORIDE [Concomitant]
     Indication: BRONCHITIS
     Route: 048
  6. MEIACT [Concomitant]
     Indication: BRONCHITIS
     Route: 048
  7. MUCOSTA [Concomitant]
     Indication: BRONCHITIS
     Route: 048
  8. CEFAMEZIN [Concomitant]
     Indication: BRONCHITIS
     Route: 065

REACTIONS (6)
  - Renal failure acute [Recovering/Resolving]
  - Malaise [Recovering/Resolving]
  - Diarrhoea [Recovering/Resolving]
  - Faeces discoloured [Recovering/Resolving]
  - Vomiting [Unknown]
  - Urine output decreased [Unknown]
